FAERS Safety Report 6201294-2 (Version None)
Quarter: 2009Q2

REPORT INFORMATION
  Report Type: 
  Country: None (occurrence: None)
  Receive Date: 20090519
  Receipt Date: 20090504
  Transmission Date: 20091009
  Serious: Yes (Other)
  Sender: FDA-Public Use
  Company Number: 2009S1007748

PATIENT
  Age: 61 Year
  Sex: Male

DRUGS (3)
  1. ALENDRONIC ACID (ALENDRONIC ACID) [Suspect]
     Indication: OSTEOPOROSIS PROPHYLAXIS
     Dosage: ORAL
     Route: 048
  2. PREDNISOLONE [Concomitant]
  3. INSULIN [Concomitant]

REACTIONS (5)
  - CONDITION AGGRAVATED [None]
  - HAEMODIALYSIS [None]
  - HYPOVOLAEMIA [None]
  - NEPHROTIC SYNDROME [None]
  - RENAL FAILURE ACUTE [None]
